FAERS Safety Report 10587573 (Version 8)
Quarter: 2015Q3

REPORT INFORMATION
  Report Type: Report from Study
  Country: US (occurrence: US)
  Receive Date: 20141117
  Receipt Date: 20150921
  Transmission Date: 20151125
  Serious: Yes (Other)
  Sender: FDA-Public Use
  Company Number: US-SANOFI-AVENTIS-2013SA061248

PATIENT
  Age: 66 Year
  Sex: Female

DRUGS (2)
  1. AUBAGIO [Suspect]
     Active Substance: TERIFLUNOMIDE
     Indication: MULTIPLE SCLEROSIS
     Route: 048
     Dates: start: 20130604, end: 20150719
  2. AUBAGIO [Suspect]
     Active Substance: TERIFLUNOMIDE
     Indication: MULTIPLE SCLEROSIS
     Route: 048
     Dates: start: 20130604, end: 20150719

REACTIONS (21)
  - Presyncope [Unknown]
  - Bronchitis chronic [Not Recovered/Not Resolved]
  - Multiple sclerosis [Unknown]
  - Neuropathy peripheral [Unknown]
  - Peripheral coldness [Not Recovered/Not Resolved]
  - Chronic sinusitis [Unknown]
  - Abdominal distension [Not Recovered/Not Resolved]
  - Sinus congestion [Not Recovered/Not Resolved]
  - Decreased appetite [Unknown]
  - Vertigo [Not Recovered/Not Resolved]
  - Visual acuity reduced [Unknown]
  - Skin discolouration [Not Recovered/Not Resolved]
  - Hepatic enzyme increased [Recovered/Resolved]
  - Memory impairment [Unknown]
  - Diarrhoea [Unknown]
  - Cough [Not Recovered/Not Resolved]
  - Productive cough [Not Recovered/Not Resolved]
  - Vomiting [Unknown]
  - Insomnia [Not Recovered/Not Resolved]
  - Haemorrhoids [Unknown]
  - Headache [Recovered/Resolved]

NARRATIVE: CASE EVENT DATE: 20130607
